FAERS Safety Report 23943065 (Version 1)
Quarter: 2024Q2

REPORT INFORMATION
  Report Type: Spontaneous
  Country: EG (occurrence: None)
  Receive Date: 20240605
  Receipt Date: 20240605
  Transmission Date: 20240716
  Serious: Yes (Other)
  Sender: FDA-Public Use
  Company Number: None

PATIENT
  Age: 33 Year
  Sex: Female
  Weight: 59 kg

DRUGS (1)
  1. PROLIA [Suspect]
     Active Substance: DENOSUMAB
     Indication: Osteoporosis
     Dosage: OTHER FREQUENCY : EVERY 6 MONTHS;?OTHER ROUTE : SUBCUTANEOUS INJECTION;?
     Route: 050

REACTIONS (3)
  - Tendon pain [None]
  - Tendon injury [None]
  - Inflammation [None]

NARRATIVE: CASE EVENT DATE: 20200226
